FAERS Safety Report 12357116 (Version 4)
Quarter: 2019Q1

REPORT INFORMATION
  Report Type: Spontaneous
  Country: FR (occurrence: FR)
  Receive Date: 20160511
  Receipt Date: 20190326
  Transmission Date: 20190417
  Serious: Yes (Hospitalization, Disabling, Congenital Anomaly, Other)
  Sender: FDA-Public Use
  Company Number: FR-LUNDBECK-DKLU2013615

PATIENT
  Age: 1 Day
  Sex: Male

DRUGS (3)
  1. URBANYL [Suspect]
     Active Substance: CLOBAZAM
     Indication: EPILEPSY
     Route: 064
  2. ZONEGRAN [Suspect]
     Active Substance: ZONISAMIDE
     Indication: EPILEPSY
     Route: 064
  3. KEPPRA [Suspect]
     Active Substance: LEVETIRACETAM
     Indication: EPILEPSY
     Route: 064
     Dates: start: 2009, end: 20150302

REACTIONS (19)
  - Autism spectrum disorder [Unknown]
  - Language disorder [Unknown]
  - Abnormal behaviour [Unknown]
  - Macrocephaly [Unknown]
  - Hypermobility syndrome [Unknown]
  - Sleep disorder [Unknown]
  - Motor developmental delay [Unknown]
  - Hypotonia [Not Recovered/Not Resolved]
  - Tremor [Unknown]
  - Psychomotor retardation [Not Recovered/Not Resolved]
  - Cytogenetic abnormality [Not Recovered/Not Resolved]
  - Hydrocephalus [Unknown]
  - Speech disorder developmental [Unknown]
  - Dysmorphism [Unknown]
  - Eating disorder [Unknown]
  - Aggression [Unknown]
  - Foetal exposure during pregnancy [Unknown]
  - Low set ears [Not Recovered/Not Resolved]
  - Cerebral disorder [Not Recovered/Not Resolved]

NARRATIVE: CASE EVENT DATE: 2014
